FAERS Safety Report 8401685-5 (Version None)
Quarter: 2012Q2

REPORT INFORMATION
  Report Type: 
  Country: None (occurrence: None)
  Receive Date: 20120601
  Receipt Date: 20120524
  Transmission Date: 20120825
  Serious: Yes (Hospitalization)
  Sender: FDA-Public Use
  Company Number: GB-ASTELLAS-2012US002647

PATIENT
  Sex: Male

DRUGS (6)
  1. TACROLIMUS [Suspect]
     Dosage: 0.1 %, PRN
     Route: 061
     Dates: start: 20100226
  2. BALNEUM PLUS [Concomitant]
     Indication: DERMATITIS ATOPIC
     Dosage: UNK
     Route: 061
     Dates: start: 20100226
  3. TACROLIMUS [Suspect]
     Indication: DERMATITIS ATOPIC
     Dosage: 0.1 %, BID
     Route: 061
     Dates: start: 20100226
  4. TZ-3 [Concomitant]
     Indication: DERMATITIS ATOPIC
     Dosage: UNK
     Route: 061
     Dates: start: 20090921
  5. CHLORPHENIRAMINE MALEATE [Concomitant]
     Indication: DERMATITIS ATOPIC
     Dosage: 2 MG/5 ML
     Route: 048
     Dates: start: 20080118
  6. CETRALON [Concomitant]
     Indication: DERMATITIS ATOPIC
     Dosage: UNK
     Route: 061
     Dates: start: 20100226

REACTIONS (3)
  - OFF LABEL USE [None]
  - ECZEMA HERPETICUM [None]
  - RASH VESICULAR [None]
